FAERS Safety Report 26101512 (Version 1)
Quarter: 2025Q4

REPORT INFORMATION
  Report Type: Spontaneous
  Country: GB (occurrence: GB)
  Receive Date: 20251128
  Receipt Date: 20251128
  Transmission Date: 20260118
  Serious: Yes (Other)
  Sender: RANBAXY
  Company Number: GB-MHRA-TPP27422229C5463601YC1762941555034

PATIENT
  Age: 77 Year
  Sex: Male
  Weight: 71 kg

DRUGS (7)
  1. LANSOPRAZOLE [Suspect]
     Active Substance: LANSOPRAZOLE
     Indication: Ill-defined disorder
     Dosage: 30 MILLIGRAM, DAILY
     Route: 065
     Dates: start: 20251002, end: 20251112
  2. OMEPRAZOLE [Concomitant]
     Active Substance: OMEPRAZOLE
     Indication: Ill-defined disorder
     Dosage: TAKE ONE DAILY  (TO REDUCE STOMACH ACID)
     Route: 065
     Dates: start: 20251112
  3. AMLODIPINE [Concomitant]
     Active Substance: AMLODIPINE BESYLATE
     Indication: Ill-defined disorder
     Dosage: TAKE ONE DAILY  (BLOOD PRESSURE)
     Route: 065
     Dates: start: 20241205
  4. ATORVASTATIN [Concomitant]
     Active Substance: ATORVASTATIN
     Indication: Ill-defined disorder
     Dosage: TAKE ONE EACH NIGHT (TO HELP REDUCE CHOLESTEROL...
     Route: 065
     Dates: start: 20241205
  5. CLOPIDOGREL [Concomitant]
     Active Substance: CLOPIDOGREL BISULFATE
     Indication: Ill-defined disorder
     Dosage: TAKE ONE DAILY TO HELP THIN THE BLOOD
     Route: 065
     Dates: start: 20241205
  6. TRIMOVATE [Concomitant]
     Active Substance: CLOBETASONE BUTYRATE\NYSTATIN\OXYTETRACYCLINE CALCIUM
     Indication: Ill-defined disorder
     Dosage: APPLY TWICE DAILY AS DIRECTED
     Route: 065
     Dates: start: 20241205
  7. GAVISCON [Concomitant]
     Active Substance: ALUMINUM HYDROXIDE\MAGNESIUM CARBONATE
     Indication: Ill-defined disorder
     Dosage: 10 MILLILITER, QD, 10ML AT NIGHT
     Route: 065
     Dates: start: 20251002

REACTIONS (2)
  - Gastroenteritis [Recovered/Resolved]
  - Diarrhoea [Recovered/Resolved]

NARRATIVE: CASE EVENT DATE: 20251112
